FAERS Safety Report 12664140 (Version 1)
Quarter: 2016Q3

REPORT INFORMATION
  Report Type: Report from Study
  Country: US (occurrence: US)
  Receive Date: 20160818
  Receipt Date: 20160818
  Transmission Date: 20161109
  Serious: No
  Sender: FDA-Public Use
  Company Number: US-AEGERION PHARMACEUTICAL INC.-AEGR002441

PATIENT
  Age: 74 Year
  Sex: Male

DRUGS (18)
  1. REPAGLINIDE. [Concomitant]
     Active Substance: REPAGLINIDE
     Dosage: 4 MG IN AM, 4 MG WITH DINNER
     Route: 048
     Dates: start: 20150716
  2. ASPIRIN. [Concomitant]
     Active Substance: ASPIRIN
     Indication: CORONARY ARTERY DISEASE
     Dosage: 162 MG, QD
     Route: 048
     Dates: start: 20110622
  3. INSULIN GLARGINE [Concomitant]
     Active Substance: INSULIN GLARGINE
     Indication: TYPE 2 DIABETES MELLITUS
     Dosage: 60 UNITS, QD
     Route: 058
     Dates: start: 20150511
  4. LOSARTAN. [Concomitant]
     Active Substance: LOSARTAN
     Dosage: 50 MG, QD
     Route: 048
     Dates: start: 20141208
  5. NEBIVOLOL. [Concomitant]
     Active Substance: NEBIVOLOL
     Indication: HYPERTENSION
     Dosage: 10 MG, QD
     Route: 048
     Dates: start: 20121228
  6. PRANDIN [Concomitant]
     Active Substance: REPAGLINIDE
     Indication: DIABETES MELLITUS
     Dosage: 0.5 MG, TAKE 1/2 HOUR BEFORE LUNCH
     Route: 048
     Dates: start: 20150716
  7. JUXTAPID [Suspect]
     Active Substance: LOMITAPIDE MESYLATE
     Dosage: 10 MG, QD
     Route: 048
     Dates: start: 20150701, end: 20150730
  8. FENOFIBRIC ACID. [Concomitant]
     Active Substance: FENOFIBRIC ACID
     Indication: TYPE V HYPERLIPIDAEMIA
     Dosage: 135 MG, QD
     Route: 048
     Dates: start: 20131111
  9. CLOPIDOGREL [Concomitant]
     Active Substance: CLOPIDOGREL BISULFATE
     Indication: CORONARY ARTERY DISEASE
     Dosage: 75 MG, QD
     Route: 048
     Dates: start: 20121008
  10. LUBIPROSTONE [Concomitant]
     Active Substance: LUBIPROSTONE
     Indication: OVERGROWTH BACTERIAL
     Dosage: 8 MCG, BID
     Route: 048
     Dates: start: 20140821
  11. REPAGLINIDE. [Concomitant]
     Active Substance: REPAGLINIDE
     Indication: DIABETES MELLITUS
     Dosage: 4 MG IN AM, 1 MG AT NOON, 4 MG WITH DINNER
     Route: 048
     Dates: start: 20140922, end: 20150715
  12. JUXTAPID [Suspect]
     Active Substance: LOMITAPIDE MESYLATE
     Indication: TYPE V HYPERLIPIDAEMIA
     Dosage: 5 MG, QD
     Route: 048
     Dates: start: 20150601, end: 20150630
  13. LOSARTAN. [Concomitant]
     Active Substance: LOSARTAN
     Indication: HYPERTENSION
     Dosage: 100 MG, QD
     Route: 048
     Dates: start: 20150320
  14. TIZANIDINE. [Concomitant]
     Active Substance: TIZANIDINE
     Indication: MUSCLE SPASMS
     Dosage: 16 MG, AT BEDTIME PRN
     Route: 048
     Dates: start: 20150209
  15. VITAMIN E [Concomitant]
     Active Substance: .ALPHA.-TOCOPHEROL
     Indication: SUPPLEMENTATION THERAPY
     Dosage: 400 UNITS, QD
     Route: 048
     Dates: start: 20150601
  16. ALIROCUMAB [Concomitant]
     Active Substance: ALIROCUMAB
     Indication: TYPE V HYPERLIPIDAEMIA
     Dosage: 75 MG, EVERY 14 DAYS
     Route: 058
     Dates: start: 20151214
  17. FEBUXOSTAT. [Concomitant]
     Active Substance: FEBUXOSTAT
     Indication: HYPERURICAEMIA
     Dosage: 40 MG, QD
     Route: 048
     Dates: start: 20130502
  18. LEVOTHYROXINE. [Concomitant]
     Active Substance: LEVOTHYROXINE
     Indication: HYPOTHYROIDISM
     Dosage: 75 MCG, QD
     Route: 048
     Dates: start: 20131209

REACTIONS (3)
  - Decreased appetite [Recovered/Resolved]
  - Pruritus [Recovered/Resolved]
  - Off label use [Unknown]

NARRATIVE: CASE EVENT DATE: 201506
